FAERS Safety Report 6382376-1 (Version None)
Quarter: 2009Q3

REPORT INFORMATION
  Report Type: 
  Country: None (occurrence: None)
  Receive Date: 20090930
  Receipt Date: 20090922
  Transmission Date: 20100115
  Serious: Yes (Other)
  Sender: FDA-Public Use
  Company Number: US-ASTRAZENECA-2009UW14366

PATIENT
  Age: 37 Year
  Sex: Female
  Weight: 104.3 kg

DRUGS (3)
  1. SEROQUEL [Suspect]
     Indication: BIPOLAR I DISORDER
     Route: 048
     Dates: start: 20020101
  2. ABILIFY [Concomitant]
     Dates: start: 19970101
  3. CLOZARIL [Concomitant]
     Dates: start: 19990101

REACTIONS (8)
  - BLOOD CHOLESTEROL INCREASED [None]
  - BLOOD TRIGLYCERIDES INCREASED [None]
  - GASTRIC BYPASS [None]
  - GASTROINTESTINAL DISORDER [None]
  - HYPERLIPIDAEMIA [None]
  - OBESITY [None]
  - TYPE 2 DIABETES MELLITUS [None]
  - WEIGHT INCREASED [None]
